FAERS Safety Report 11307595 (Version 1)
Quarter: 2015Q3

REPORT INFORMATION
  Report Type: Spontaneous
  Country: US (occurrence: US)
  Receive Date: 20150723
  Receipt Date: 20150723
  Transmission Date: 20151125
  Serious: No
  Sender: FDA-Public Use
  Company Number: US-BAUSCH-SP09507

PATIENT
  Age: 28 Year
  Sex: Male

DRUGS (1)
  1. XIFAXAN [Suspect]
     Active Substance: RIFAXIMIN
     Indication: CROHN^S DISEASE
     Dates: start: 201312, end: 201504

REACTIONS (3)
  - Diarrhoea [Unknown]
  - Drug dose omission [Unknown]
  - Dyspepsia [Unknown]

NARRATIVE: CASE EVENT DATE: 201504
